FAERS Safety Report 6053163-9 (Version None)
Quarter: 2009Q1

REPORT INFORMATION
  Report Type: 
  Country: None (occurrence: None)
  Receive Date: 20090123
  Receipt Date: 20090108
  Transmission Date: 20090719
  Serious: Yes (Other)
  Sender: FDA-Public Use
  Company Number: 143986

PATIENT
  Age: 65 Year
  Sex: Female

DRUGS (2)
  1. PACLITAXEL [Suspect]
     Indication: ENDOMETRIAL CANCER
  2. (THERAPEUTIC RADIOPHARMACEUTICALS) [Suspect]
     Indication: ENDOMETRIAL CANCER

REACTIONS (2)
  - LUNG CONSOLIDATION [None]
  - LUNG DISORDER [None]
